FAERS Safety Report 22130811 (Version 2)
Quarter: 2023Q1

REPORT INFORMATION
  Report Type: Spontaneous
  Country: US (occurrence: US)
  Receive Date: 20230323
  Receipt Date: 20230327
  Transmission Date: 20230418
  Serious: No
  Sender: FDA-Public Use
  Company Number: US-002147023-NVSC2023US063496

PATIENT
  Sex: Female

DRUGS (3)
  1. VIVELLE-DOT [Suspect]
     Active Substance: ESTRADIOL
     Indication: Product used for unknown indication
     Dosage: 0.1 MG, QD, 3 ,4 PATCH WEEK
     Route: 065
  2. TESTOSTERONE [Concomitant]
     Active Substance: TESTOSTERONE
     Indication: Product used for unknown indication
     Dosage: UNK
     Route: 065
  3. PROGESTERONE [Concomitant]
     Active Substance: PROGESTERONE
     Indication: Product used for unknown indication
     Dosage: 400 MG
     Route: 048

REACTIONS (5)
  - Hyperhidrosis [Unknown]
  - Dry skin [Unknown]
  - Condition aggravated [Unknown]
  - Breast pain [Unknown]
  - Drug ineffective [Unknown]
